FAERS Safety Report 6317401-7 (Version None)
Quarter: 2009Q3

REPORT INFORMATION
  Report Type: 
  Country: None (occurrence: None)
  Receive Date: 20090820
  Receipt Date: 20090820
  Transmission Date: 20100115
  Serious: No
  Sender: FDA-Public Use
  Company Number: None

PATIENT
  Sex: Male
  Weight: 90.7194 kg

DRUGS (2)
  1. ZETIA [Suspect]
     Indication: BLOOD CHOLESTEROL INCREASED
     Dosage: ONE 10MG TABLET DAILY CVS PHARMACY #3814
     Dates: start: 20090324, end: 20090403
  2. ZETIA [Suspect]
     Indication: BLOOD CHOLESTEROL INCREASED
     Dosage: ONE 10MG TABLET DAILY CVS PHARMACY #3814
     Dates: start: 20090428, end: 20090513

REACTIONS (2)
  - DIARRHOEA [None]
  - MYALGIA [None]
